FAERS Safety Report 19029419 (Version 1)
Quarter: 2021Q1

REPORT INFORMATION
  Report Type: Spontaneous
  Country: IN (occurrence: IN)
  Receive Date: 20210319
  Receipt Date: 20210319
  Transmission Date: 20210420
  Serious: No
  Sender: FDA-Public Use
  Company Number: IN-LUPIN LIMITED-2021-03331

PATIENT
  Age: 24 Year
  Sex: Male

DRUGS (10)
  1. CIPROFLOXACIN. [Suspect]
     Active Substance: CIPROFLOXACIN
     Indication: KERATITIS FUNGAL
     Dosage: UNK, OINTMENT
     Route: 065
  2. AZITHROMYCIN ANHYDROUS. [Suspect]
     Active Substance: AZITHROMYCIN ANHYDROUS
     Indication: KERATITIS FUNGAL
     Dosage: EYE DROPS; ONE DROP EVERY HOUR WHILE AWAKE
     Route: 047
  3. AZITHROMYCIN ANHYDROUS. [Suspect]
     Active Substance: AZITHROMYCIN ANHYDROUS
     Indication: PYTHIUM INSIDIOSUM INFECTION
     Dosage: 500 MILLIGRAM, QD
     Route: 047
  4. LINEZOLID. [Suspect]
     Active Substance: LINEZOLID
     Indication: PYTHIUM INSIDIOSUM INFECTION
     Dosage: UNK
     Route: 061
  5. ETHANOL ABSOLUTE [Suspect]
     Active Substance: ALCOHOL
     Indication: KERATITIS FUNGAL
     Dosage: UNK, USING A 3.5 MM COTTON SWAB SOAKED IN ABSOLUTE ETHANOL AND PLACED OVER THE GRAFT FOR A DURATION
     Route: 061
  6. AZITHROMYCIN ANHYDROUS. [Suspect]
     Active Substance: AZITHROMYCIN ANHYDROUS
     Dosage: UNK
     Route: 061
  7. CIPROFLOXACIN. [Suspect]
     Active Substance: CIPROFLOXACIN
     Indication: PYTHIUM INSIDIOSUM INFECTION
  8. ETHANOL ABSOLUTE [Suspect]
     Active Substance: ALCOHOL
     Indication: PYTHIUM INSIDIOSUM INFECTION
  9. LINEZOLID. [Suspect]
     Active Substance: LINEZOLID
     Indication: KERATITIS FUNGAL
     Dosage: EYE DROPS; ONE DROP EVERY HOUR WHILE AWAKE
     Route: 047
  10. SALINE [SODIUM CHLORIDE] [Concomitant]
     Active Substance: SODIUM CHLORIDE
     Indication: DRUG THERAPY
     Dosage: PROCEDURE WAS PERFORMED DAILY FOR 3 DAYS
     Route: 061

REACTIONS (1)
  - Off label use [Unknown]
